FAERS Safety Report 18401679 (Version 2)
Quarter: 2020Q4

REPORT INFORMATION
  Report Type: Report from Study
  Country: None (occurrence: CA)
  Receive Date: 20201019
  Receipt Date: 20201028
  Transmission Date: 20210114
  Serious: No
  Sender: FDA-Public Use
  Company Number: CA-ABBVIE-20K-028-3608964-00

PATIENT
  Sex: Female

DRUGS (1)
  1. HUMIRA [Suspect]
     Active Substance: ADALIMUMAB
     Indication: UVEITIS
     Route: 058
     Dates: start: 20181017

REACTIONS (2)
  - Maternal exposure during pregnancy [Unknown]
  - Human chorionic gonadotropin increased [Unknown]
